FAERS Safety Report 9891938 (Version 2)
Quarter: 2014Q1

REPORT INFORMATION
  Report Type: Spontaneous
  Country: US (occurrence: US)
  Receive Date: 20140212
  Receipt Date: 20140327
  Transmission Date: 20141002
  Serious: No
  Sender: FDA-Public Use
  Company Number: US-009507513-1402USA004938

PATIENT
  Age: 45 Year
  Sex: Female
  Weight: 74.38 kg

DRUGS (5)
  1. CLARITIN REDITABS 12HR [Suspect]
     Indication: EYE PRURITUS
     Dosage: UNK, UNKNOWN
     Route: 048
     Dates: start: 20140125, end: 20140126
  2. CLARITIN REDITABS 12HR [Suspect]
     Indication: UPPER-AIRWAY COUGH SYNDROME
  3. CLARITIN REDITABS 12HR [Suspect]
     Indication: RESPIRATORY TRACT CONGESTION
  4. CLARITIN REDITABS 12HR [Suspect]
     Indication: RHINORRHOEA
  5. CLARITIN REDITABS 12HR [Suspect]
     Indication: HEADACHE

REACTIONS (1)
  - Drug ineffective [Unknown]
